FAERS Safety Report 5377225-4 (Version None)
Quarter: 2007Q2

REPORT INFORMATION
  Report Type: 
  Country: None (occurrence: None)
  Receive Date: 20070629
  Receipt Date: 20070629
  Transmission Date: 20071010
  Serious: Yes (Disabling)
  Sender: FDA-Public Use
  Company Number: None

PATIENT
  Sex: Female
  Weight: 65.318 kg

DRUGS (5)
  1. FORTEO [Suspect]
     Indication: OSTEOPOROSIS
     Dosage: 20 MCG DAILY SQ
     Route: 058
     Dates: start: 20061120, end: 20070626
  2. LEVOXYL [Concomitant]
  3. AMBIEN [Concomitant]
  4. CALCIUM CHLORIDE [Concomitant]
  5. MULTI-VITAMIN [Concomitant]

REACTIONS (4)
  - ENDODONTIC PROCEDURE [None]
  - SENSITIVITY OF TEETH [None]
  - TOOTH EROSION [None]
  - TOOTH RESORPTION [None]
